FAERS Safety Report 24246379 (Version 1)
Quarter: 2024Q3

REPORT INFORMATION
  Report Type: Other
  Country: US (occurrence: CA)
  Receive Date: 20240825
  Receipt Date: 20240825
  Transmission Date: 20241016
  Serious: Yes (Other)
  Sender: LUPIN
  Company Number: US-LUPIN PHARMACEUTICALS INC.-2024-08235

PATIENT

DRUGS (1)
  1. CEPHALEXIN [Suspect]
     Active Substance: CEPHALEXIN
     Indication: Urinary tract infection
     Dosage: 500 MG, QD (4 EVERY 1 DAYS)
     Route: 048

REACTIONS (5)
  - Constipation [Recovering/Resolving]
  - Elsberg syndrome [Recovering/Resolving]
  - Paraesthesia [Recovering/Resolving]
  - Protein total increased [Recovering/Resolving]
  - Urinary retention [Recovering/Resolving]
